FAERS Safety Report 9766387 (Version 1)
Quarter: 2013Q4

REPORT INFORMATION
  Report Type: Spontaneous
  Country: US (occurrence: US)
  Receive Date: 20131217
  Receipt Date: 20131217
  Transmission Date: 20140711
  Serious: No
  Sender: FDA-Public Use
  Company Number: US-GLAXOSMITHKLINE-A1026967A

PATIENT
  Age: 49 Year
  Sex: Male

DRUGS (1)
  1. VOTRIENT [Suspect]
     Indication: ILL-DEFINED DISORDER
     Dosage: 400MG PER DAY
     Route: 048
     Dates: start: 20130524

REACTIONS (3)
  - Decreased appetite [Not Recovered/Not Resolved]
  - Ocular icterus [Not Recovered/Not Resolved]
  - Jaundice [Not Recovered/Not Resolved]
